FAERS Safety Report 19656858 (Version 1)
Quarter: 2021Q3

REPORT INFORMATION
  Report Type: Spontaneous
  Country: US (occurrence: US)
  Receive Date: 20210804
  Receipt Date: 20210804
  Transmission Date: 20211014
  Serious: Yes (Hospitalization, Other)
  Sender: FDA-Public Use
  Company Number: US-CIPLA LTD.-2021US05240

PATIENT

DRUGS (1)
  1. ISOPROTERENOL. [Suspect]
     Active Substance: ISOPROTERENOL
     Indication: VENTRICULAR TACHYCARDIA
     Dosage: 0.1 MICROGRAM/KILOGRAM PER MIN, UNK

REACTIONS (1)
  - Electrocardiogram QRS complex prolonged [Recovered/Resolved]
